FAERS Safety Report 9031399 (Version 1)
Quarter: 2013Q1

REPORT INFORMATION
  Report Type: Report from Study
  Country: DK (occurrence: DK)
  Receive Date: 20130124
  Receipt Date: 20130124
  Transmission Date: 20140127
  Serious: Yes (Death)
  Sender: FDA-Public Use
  Company Number: PHHY2007DK011987

PATIENT
  Age: 66 Year
  Sex: Female

DRUGS (3)
  1. SANDOSTATIN LAR [Suspect]
  2. CHEMOTHERAPEUTICS [Concomitant]
  3. INTERFERON ALFA [Concomitant]

REACTIONS (1)
  - Neoplasm malignant [Fatal]
